FAERS Safety Report 21114194 (Version 1)
Quarter: 2022Q3

REPORT INFORMATION
  Report Type: Spontaneous
  Country: US (occurrence: US)
  Receive Date: 20220721
  Receipt Date: 20220721
  Transmission Date: 20221026
  Serious: No
  Sender: FDA-Public Use
  Company Number: US-PERRIGO-22US000792

PATIENT
  Age: 41 Year
  Sex: Male
  Weight: 76.19 kg

DRUGS (1)
  1. MINOXIDIL [Suspect]
     Active Substance: MINOXIDIL
     Indication: Alopecia
     Dosage: 1 ML, 1 TO 2 TIMES DAILY
     Route: 061
     Dates: start: 202103, end: 20220101

REACTIONS (6)
  - Application site dryness [Not Recovered/Not Resolved]
  - Dandruff [Not Recovered/Not Resolved]
  - Application site mass [Recovered/Resolved]
  - Dysuria [Not Recovered/Not Resolved]
  - Application site pruritus [Not Recovered/Not Resolved]
  - Inappropriate schedule of product administration [Recovered/Resolved]

NARRATIVE: CASE EVENT DATE: 20210301
